FAERS Safety Report 16400548 (Version 1)
Quarter: 2020Q3

REPORT INFORMATION
  Report Type: Report from Study
  Country: CZ (occurrence: CZ)
  Receive Date: 20190606
  Receipt Date: 20190606
  Transmission Date: 20201105
  Serious: Yes (Life-Threatening, Hospitalization)
  Sender: FDA-Public Use
  Company Number: CZ-JNJFOC-20140615516

PATIENT
  Age: 66 Year
  Sex: Male
  Weight: 77 kg

DRUGS (9)
  1. MILURIT [Concomitant]
     Active Substance: ALLOPURINOL
     Route: 048
  2. PRESTARIUM [Concomitant]
     Active Substance: PERINDOPRIL
     Route: 048
  3. IBRUTINIB [Suspect]
     Active Substance: IBRUTINIB
     Route: 048
  4. HERPESIN [Concomitant]
     Active Substance: ACYCLOVIR
     Route: 048
  5. DISULONE [Concomitant]
     Active Substance: DAPSONE\FERROUS OXALATE
     Route: 048
  6. IBRUTINIB [Suspect]
     Active Substance: IBRUTINIB
     Indication: CHRONIC LYMPHOCYTIC LEUKAEMIA
     Route: 048
     Dates: start: 20140618, end: 20140622
  7. BENDAMUSTINE HYDROCHLORIDE. [Suspect]
     Active Substance: BENDAMUSTINE HYDROCHLORIDE
     Indication: CHRONIC LYMPHOCYTIC LEUKAEMIA
     Dosage: 2 DAYS PER MONTH
     Route: 042
     Dates: start: 20130918, end: 20140227
  8. LYRICA [Concomitant]
     Active Substance: PREGABALIN
     Route: 048
     Dates: start: 201304
  9. RITUXIMAB. [Suspect]
     Active Substance: RITUXIMAB
     Indication: CHRONIC LYMPHOCYTIC LEUKAEMIA
     Route: 042
     Dates: start: 20130916, end: 20140226

REACTIONS (2)
  - Subdural haematoma [Recovered/Resolved with Sequelae]
  - Fall [Recovered/Resolved]

NARRATIVE: CASE EVENT DATE: 20140621
